FAERS Safety Report 16651711 (Version 12)
Quarter: 2020Q4

REPORT INFORMATION
  Report Type: Spontaneous
  Country: MX (occurrence: MX)
  Receive Date: 20190731
  Receipt Date: 20201020
  Transmission Date: 20210113
  Serious: Yes (Death, Life-Threatening, Hospitalization)
  Sender: FDA-Public Use
  Company Number: MX-HTU-2019MX019289

PATIENT
  Age: 60 Year
  Sex: Female
  Weight: 48.8 kg

DRUGS (15)
  1. PALONOSETRON HYDROCHLORIDE. [Suspect]
     Active Substance: PALONOSETRON HYDROCHLORIDE
     Indication: PROPHYLAXIS OF NAUSEA AND VOMITING
     Dosage: 0.25 MILLIGRAM, SINGLE
     Route: 042
     Dates: start: 20190315, end: 20190315
  2. THIAMINE. [Concomitant]
     Active Substance: THIAMINE
     Indication: PELVIC PAIN
     Dosage: 30 MILLIGRAM, QD
     Route: 048
     Dates: start: 20190218, end: 20190329
  3. DOXORUBICIN [Suspect]
     Active Substance: DOXORUBICIN
     Dosage: 60 MILLIGRAM/SQ. METER, Q3WK
     Route: 042
     Dates: start: 20181220, end: 20190222
  4. ACETAMINOPHEN. [Concomitant]
     Active Substance: ACETAMINOPHEN
     Indication: MYALGIA
     Dosage: UNK
     Route: 042
     Dates: start: 20190325, end: 20190329
  5. DICLOFENAC [Concomitant]
     Active Substance: DICLOFENAC
     Dosage: UNK
     Dates: start: 20180208, end: 20190329
  6. OMEPRAZOLE. [Concomitant]
     Active Substance: OMEPRAZOLE
     Indication: PROPHYLAXIS
  7. PYRIDOXINE [Concomitant]
     Active Substance: PYRIDOXINE
     Indication: NEURALGIA
     Dosage: 10 MILLIGRAM, QD
     Route: 048
     Dates: start: 20190218, end: 20190329
  8. TRAMADOL HYDROCHLORIDE. [Concomitant]
     Active Substance: TRAMADOL HYDROCHLORIDE
     Dosage: 25 MILLIGRAM, UNKNOWN
     Route: 065
     Dates: start: 20190215, end: 20190329
  9. ATORVASTATIN [Concomitant]
     Active Substance: ATORVASTATIN
     Dosage: UNK
     Dates: start: 20180420, end: 20190329
  10. KETOROLAC TROMETHAMINE. [Concomitant]
     Active Substance: KETOROLAC TROMETHAMINE
     Dosage: 10 MILLIGRAM, UNKNOWN
     Route: 065
     Dates: start: 20190215, end: 20190329
  11. METOCLOPRAMIDE. [Concomitant]
     Active Substance: METOCLOPRAMIDE
     Indication: PROPHYLAXIS
     Dosage: 10 MILLIGRAM, UNKNOWN
     Route: 065
     Dates: start: 20190315, end: 20190315
  12. DEXAMETHASONE. [Concomitant]
     Active Substance: DEXAMETHASONE
     Dosage: 8 MILLIGRAM, UNKNOWN
     Route: 065
     Dates: start: 20190315, end: 20190315
  13. APREPITANT. [Concomitant]
     Active Substance: APREPITANT
     Dosage: 10 MILLIGRAM, UNKNOWN
     Route: 065
     Dates: start: 20190315, end: 20190315
  14. DOXORUBICIN [Suspect]
     Active Substance: DOXORUBICIN
     Indication: ENDOMETRIAL CANCER
     Dosage: 60 MILLIGRAM/SQ. METER, Q3WK
     Route: 042
     Dates: start: 20190315, end: 20190315
  15. CYANOCOBALAMINE [Concomitant]
     Active Substance: CYANOCOBALAMIN
     Indication: PELVIC PAIN
     Dosage: 150 MICROGRAM, QD
     Route: 048
     Dates: start: 20190218, end: 20190329

REACTIONS (10)
  - Delirium [Recovered/Resolved]
  - Dehydration [Recovered/Resolved]
  - Thrombocytopenia [Not Recovered/Not Resolved]
  - Liver disorder [Not Recovered/Not Resolved]
  - Leukocytosis [Not Recovered/Not Resolved]
  - Pneumonia [Fatal]
  - Neutrophilia [Not Recovered/Not Resolved]
  - Vomiting [Recovered/Resolved]
  - Leukopenia [Recovered/Resolved]
  - Neutropenia [Recovered/Resolved]

NARRATIVE: CASE EVENT DATE: 20190321
